FAERS Safety Report 15214490 (Version 2)
Quarter: 2018Q4

REPORT INFORMATION
  Report Type: Spontaneous
  Country: PT (occurrence: PT)
  Receive Date: 20180730
  Receipt Date: 20180905
  Transmission Date: 20190204
  Serious: Yes (Disabling)
  Sender: FDA-Public Use
  Company Number: PT-TEVA-2018-PT-850270

PATIENT
  Age: 79 Year
  Sex: Female
  Weight: 68 kg

DRUGS (17)
  1. PARACETAMOL [Suspect]
     Active Substance: ACETAMINOPHEN
     Indication: OSTEOARTHRITIS
     Route: 048
     Dates: start: 20170817, end: 20170823
  2. NOLOTIL (METAMIZOLE MAGNESIUM) [Suspect]
     Active Substance: METAMIZOLE MAGNESIUM
     Indication: OSTEOPOROSIS PROPHYLAXIS
     Dosage: 1 DOSAGE FORMS DAILY;
     Route: 042
     Dates: start: 20170810, end: 20170816
  3. TRIDURAL [Suspect]
     Active Substance: TRAMADOL HYDROCHLORIDE
     Indication: OSTEOARTHRITIS
     Route: 048
     Dates: start: 20170824, end: 20171003
  4. FOSAVANCE [Concomitant]
     Active Substance: ALENDRONATE SODIUM\CHOLECALCIFEROL
     Indication: OSTEOPOROSIS PROPHYLAXIS
     Dosage: 1 TABLET PER WEEK
     Route: 048
  5. CARTIA (ACETYLSALICYLIC ACID) [Concomitant]
     Active Substance: ASPIRIN
     Indication: PROPHYLAXIS
     Dosage: 100 MG EVERY OTHER DAY
     Route: 048
     Dates: start: 1992
  6. AMLODIPINE [Concomitant]
     Active Substance: AMLODIPINE BESYLATE
     Indication: HYPERTENSION
     Dosage: 5 MILLIGRAM DAILY;
     Route: 048
     Dates: start: 2012
  7. PARACETAMOL SANDOZ [Suspect]
     Active Substance: ACETAMINOPHEN
     Indication: OSTEOARTHRITIS
     Dosage: 1 GRAM DAILY;
     Route: 048
     Dates: start: 20170824, end: 20170920
  8. PARACETAMOL SANDOZ [Suspect]
     Active Substance: ACETAMINOPHEN
     Route: 042
     Dates: start: 20170810, end: 20170817
  9. OMEPRAZOLE. [Concomitant]
     Active Substance: OMEPRAZOLE
     Indication: PROPHYLAXIS AGAINST GASTROINTESTINAL ULCER
     Dosage: 20 MILLIGRAM DAILY;
     Route: 048
     Dates: start: 2008
  10. TRAMADOL. [Suspect]
     Active Substance: TRAMADOL
     Indication: OSTEOARTHRITIS
     Dosage: 1 DOSAGE FORMS DAILY;
     Route: 048
     Dates: start: 20170817, end: 20170824
  11. PARACETAMOL [Suspect]
     Active Substance: ACETAMINOPHEN
     Indication: OSTEOARTHRITIS
     Dosage: 1 DOSAGE FORMS DAILY;
     Route: 042
     Dates: start: 20170810, end: 20170817
  12. DIAMICRON LM 30 MG [Concomitant]
     Indication: GLUCOSE TOLERANCE IMPAIRED
     Dosage: 30 MILLIGRAM DAILY;
     Route: 048
     Dates: start: 2015
  13. TENORMIN MITE [Concomitant]
     Indication: HYPERTENSION
     Dosage: 50 MILLIGRAM DAILY;
     Route: 048
     Dates: start: 1991
  14. LISALGIL [Suspect]
     Active Substance: METAMIZOLE SODIUM
     Indication: OSTEOARTHRITIS
     Route: 042
     Dates: start: 20170810, end: 20170817
  15. TRAMADOL. [Suspect]
     Active Substance: TRAMADOL
     Indication: OSTEOARTHRITIS
     Dosage: 1 DOSAGE FORMS DAILY;
     Route: 042
     Dates: start: 20170810, end: 20170817
  16. NOLOTIL (METAMIZOLE MAGNESIUM) [Suspect]
     Active Substance: METAMIZOLE MAGNESIUM
     Indication: OSTEOARTHRITIS
  17. HYTACAND 16 MG [Concomitant]
     Indication: HYPERTENSION
     Dosage: 1 DOSAGE FORMS DAILY;
     Route: 048
     Dates: start: 1991

REACTIONS (12)
  - Micturition frequency decreased [Recovered/Resolved]
  - Constipation [Recovered/Resolved]
  - Cachexia [Recovered/Resolved]
  - Nausea [Recovered/Resolved]
  - Abdominal distension [Recovered/Resolved]
  - Vomiting [Recovered/Resolved]
  - Heart rate increased [Recovered/Resolved]
  - Decreased appetite [Recovered/Resolved]
  - Diarrhoea [Recovered/Resolved]
  - Tremor [Recovered/Resolved]
  - Hallucination, visual [Recovered/Resolved]
  - Flatulence [Recovered/Resolved]

NARRATIVE: CASE EVENT DATE: 201708
